FAERS Safety Report 4366852-9 (Version None)
Quarter: 2004Q2

REPORT INFORMATION
  Report Type: 
  Country: None (occurrence: None)
  Receive Date: 20040524
  Receipt Date: 20040510
  Transmission Date: 20050107
  Serious: Yes (Hospitalization)
  Sender: FDA-Public Use
  Company Number: 206267

PATIENT
  Sex: Female

DRUGS (3)
  1. HERCEPTIN [Suspect]
     Indication: BREAST CANCER METASTATIC
     Dosage: INTRAVENOUS
     Route: 042
  2. PACLITAXEL [Suspect]
  3. CARBOPLATIN [Suspect]

REACTIONS (2)
  - HAEMOLYSIS [None]
  - RENAL FAILURE [None]
